FAERS Safety Report 16921866 (Version 1)
Quarter: 2019Q4

REPORT INFORMATION
  Report Type: Spontaneous
  Country: CH (occurrence: CH)
  Receive Date: 20191015
  Receipt Date: 20191015
  Transmission Date: 20200122
  Serious: Yes (Disabling)
  Sender: FDA-Public Use
  Company Number: PHHY2019CH226576

PATIENT
  Sex: Male
  Weight: 77 kg

DRUGS (1)
  1. METO ZEROK [Suspect]
     Active Substance: METOPROLOL SUCCINATE
     Indication: HYPERTENSION
     Dosage: 50 MG, QD
     Route: 048
     Dates: start: 20190625, end: 20190627

REACTIONS (1)
  - Muscle rupture [Recovered/Resolved with Sequelae]
